FAERS Safety Report 24698802 (Version 1)
Quarter: 2024Q4

REPORT INFORMATION
  Report Type: Spontaneous
  Country: CN (occurrence: CN)
  Receive Date: 20241205
  Receipt Date: 20241205
  Transmission Date: 20250115
  Serious: Yes (Other)
  Sender: AMGEN
  Company Number: CN-AMGEN-CHNSP2024237492

PATIENT
  Age: 48 Year
  Sex: Male

DRUGS (1)
  1. REPATHA [Suspect]
     Active Substance: EVOLOCUMAB
     Indication: Hyperlipidaemia
     Dosage: 140 MILLIGRAM (1)
     Route: 058
     Dates: start: 20241127, end: 20241127

REACTIONS (5)
  - Gait disturbance [Recovering/Resolving]
  - Tachypnoea [Recovering/Resolving]
  - Feeling cold [Recovering/Resolving]
  - Feeling abnormal [Recovering/Resolving]
  - Chest discomfort [Recovering/Resolving]

NARRATIVE: CASE EVENT DATE: 20241127
